FAERS Safety Report 8550866-9 (Version None)
Quarter: 2012Q3

REPORT INFORMATION
  Report Type: 
  Country: None (occurrence: None)
  Receive Date: 20120730
  Receipt Date: 20110829
  Transmission Date: 20120928
  Serious: No
  Sender: FDA-Public Use
  Company Number: US-GLAXOSMITHKLINE-A0943792A

PATIENT
  Age: 72 Year
  Sex: Female
  Weight: 93.2 kg

DRUGS (5)
  1. MULTIPLE MEDICATION [Concomitant]
  2. ZANTAC [Suspect]
     Indication: PRURITUS
     Route: 065
  3. BENADRYL [Suspect]
     Indication: PRURITUS
     Route: 065
  4. LOVAZA [Concomitant]
  5. IMDUR [Concomitant]

REACTIONS (1)
  - DRUG INEFFECTIVE [None]
